FAERS Safety Report 12639253 (Version 2)
Quarter: 2016Q3

REPORT INFORMATION
  Report Type: Spontaneous
  Country: JP (occurrence: None)
  Receive Date: 20160808
  Receipt Date: 20160901
  Transmission Date: 20161109
  Serious: Yes (Hospitalization)
  Sender: FDA-Public Use
  Company Number: JP2016K3722LIT

PATIENT
  Age: 8 Decade
  Sex: Female

DRUGS (2)
  1. LANSOPRAZOLE WORLD (LANSOPRAZOLE) UNKNOWN [Suspect]
     Active Substance: LANSOPRAZOLE
     Indication: ANALGESIC THERAPY
  2. MELOXICAM (MELOXICAM) [Suspect]
     Active Substance: MELOXICAM
     Indication: ANALGESIC THERAPY

REACTIONS (7)
  - Large intestine perforation [None]
  - Dehydration [None]
  - Blood potassium increased [None]
  - Anaemia [None]
  - Scar [None]
  - Colitis microscopic [None]
  - Blood sodium decreased [None]
